FAERS Safety Report 7710065-7 (Version None)
Quarter: 2011Q3

REPORT INFORMATION
  Report Type: 
  Country: None (occurrence: None)
  Receive Date: 20110825
  Receipt Date: 20110819
  Transmission Date: 20111222
  Serious: Yes (Hospitalization)
  Sender: FDA-Public Use
  Company Number: PHHY2011IT74682

PATIENT
  Sex: Male

DRUGS (2)
  1. DICLOFENAC SODIUM [Suspect]
     Dosage: ONE POSOLOGIC UNIT, DAILY
     Route: 048
     Dates: start: 20110612, end: 20110616
  2. SIMVASTATIN [Concomitant]
     Dosage: 10 MG, UNK

REACTIONS (2)
  - HAEMOPTYSIS [None]
  - SALIVARY HYPERSECRETION [None]
